FAERS Safety Report 8224470-6 (Version None)
Quarter: 2012Q1

REPORT INFORMATION
  Report Type: 
  Country: None (occurrence: None)
  Receive Date: 20120321
  Receipt Date: 20120314
  Transmission Date: 20120608
  Serious: No
  Sender: FDA-Public Use
  Company Number: PHHY2011JP109310

PATIENT
  Age: 60 Year
  Sex: Male

DRUGS (7)
  1. CARVEDILOL [Suspect]
     Route: 048
  2. OMEPRAZOLE [Suspect]
     Route: 048
  3. ASPIRIN [Suspect]
     Route: 048
  4. CRESTOR [Suspect]
     Route: 048
  5. ROHYPNOL [Suspect]
     Route: 048
  6. DIOVAN [Suspect]
     Indication: HYPERTENSION
     Dosage: UNK
     Route: 048
     Dates: start: 20111001
  7. PURSENNID [Suspect]
     Route: 048

REACTIONS (3)
  - RASH [None]
  - FATIGUE [None]
  - ZINC DEFICIENCY [None]
